FAERS Safety Report 9195861 (Version 2)
Quarter: 2013Q2

REPORT INFORMATION
  Report Type: Spontaneous
  Country: US (occurrence: None)
  Receive Date: 20120703
  Receipt Date: 20121031
  Transmission Date: 20140414
  Serious: Yes (Other)
  Sender: FDA-Public Use
  Company Number: PHEH2012US008703

PATIENT
  Age: 63 Year
  Sex: Female
  Weight: 72.6 kg

DRUGS (4)
  1. GILENYA (FTY) CAPSULE, 0.5MG [Suspect]
     Indication: MULTIPLE SCLEROSIS
     Route: 048
     Dates: start: 201202
  2. SYNTHROID (LEVOTHYROXINE SODIUM) [Concomitant]
  3. LEXAPRO [Concomitant]
  4. L-THYROXINE (LEVOTHYROXINE) [Concomitant]

REACTIONS (3)
  - Hypersomnia [None]
  - Fatigue [None]
  - Depression [None]
